FAERS Safety Report 5254931-3 (Version None)
Quarter: 2007Q1

REPORT INFORMATION
  Report Type: 
  Country: None (occurrence: None)
  Receive Date: 20070302
  Receipt Date: 20070302
  Transmission Date: 20070707
  Serious: No
  Sender: FDA-Public Use
  Company Number: None

PATIENT
  Sex: Male
  Weight: 104.7809 kg

DRUGS (5)
  1. SEROQUEL [Suspect]
     Indication: INSOMNIA
     Dates: start: 20040428, end: 20070211
  2. SEROQUEL [Suspect]
     Indication: TRAUMATIC BRAIN INJURY
     Dates: start: 20040428, end: 20070211
  3. PAXIL [Suspect]
     Indication: DEPRESSION
     Dates: start: 20021017, end: 20070228
  4. PAXIL [Suspect]
     Indication: TRAUMATIC BRAIN INJURY
     Dates: start: 20021017, end: 20070228
  5. DEPAKOTE [Concomitant]

REACTIONS (2)
  - NO THERAPEUTIC RESPONSE [None]
  - PRIAPISM [None]
